FAERS Safety Report 4688848-X (Version None)
Quarter: 2005Q2

REPORT INFORMATION
  Report Type: 
  Country: None (occurrence: None)
  Receive Date: 20050613
  Receipt Date: 20050603
  Transmission Date: 20051028
  Serious: Yes (Other)
  Sender: FDA-Public Use
  Company Number: JP-GLAXOSMITHKLINE-B0383625A

PATIENT
  Age: 70 Year
  Sex: Female

DRUGS (3)
  1. PAXIL [Suspect]
     Indication: DEPRESSION
     Dosage: 10MG PER DAY
     Route: 048
  2. DOGMATYL [Suspect]
     Route: 048
  3. UNKNOWN [Concomitant]
     Route: 065

REACTIONS (2)
  - CEREBELLAR ATROPHY [None]
  - DIZZINESS [None]
